FAERS Safety Report 14239040 (Version 1)
Quarter: 2017Q4

REPORT INFORMATION
  Report Type: Spontaneous
  Country: US (occurrence: US)
  Receive Date: 20171130
  Receipt Date: 20171130
  Transmission Date: 20180321
  Serious: No
  Sender: FDA-Public Use
  Company Number: US-PFIZER INC-2017512473

PATIENT
  Age: 60 Year
  Sex: Male
  Weight: 107 kg

DRUGS (1)
  1. XELJANZ XR [Suspect]
     Active Substance: TOFACITINIB CITRATE
     Indication: RHEUMATOID ARTHRITIS
     Dosage: 11 MG, DAILY
     Route: 048
     Dates: start: 201709

REACTIONS (4)
  - Headache [Unknown]
  - Cough [Unknown]
  - Nasopharyngitis [Unknown]
  - Chills [Unknown]
